FAERS Safety Report 17412904 (Version 1)
Quarter: 2020Q1

REPORT INFORMATION
  Report Type: Spontaneous
  Country: US (occurrence: US)
  Receive Date: 20200212
  Receipt Date: 20200212
  Transmission Date: 20200409
  Serious: Yes (Disabling)
  Sender: FDA-Public Use
  Company Number: None

PATIENT
  Age: 37 Year
  Sex: Female
  Weight: 63.9 kg

DRUGS (1)
  1. GUAIFENESIN EXTENDED-RELEASE [Suspect]
     Active Substance: GUAIFENESIN
     Indication: FIBROMYALGIA
     Dosage: ?          QUANTITY:40 TABLET(S);?
     Route: 048
     Dates: start: 20190723, end: 20200211

REACTIONS (3)
  - Product substitution issue [None]
  - Product odour abnormal [None]
  - Bedridden [None]

NARRATIVE: CASE EVENT DATE: 20190725
